FAERS Safety Report 9378024 (Version 1)
Quarter: 2013Q3

REPORT INFORMATION
  Report Type: Spontaneous
  Country: US (occurrence: US)
  Receive Date: 20130701
  Receipt Date: 20130701
  Transmission Date: 20140515
  Serious: Yes (Hospitalization, Other)
  Sender: FDA-Public Use
  Company Number: US-ROXANE LABORATORIES, INC.-2013-RO-01058RO

PATIENT
  Age: 11 Year
  Sex: Female

DRUGS (7)
  1. PREDNISONE [Suspect]
  2. PREDNISONE [Suspect]
     Dosage: 40 MG
  3. ANAKINRA [Suspect]
     Indication: HISTIOCYTOSIS HAEMATOPHAGIC
     Dosage: 100 MG
     Route: 058
  4. ANAKINRA [Suspect]
  5. CYCLOSPORINE [Suspect]
     Route: 042
  6. CYCLOSPORINE [Suspect]
  7. CYCLOSPORINE [Suspect]
     Dosage: 300 MG

REACTIONS (4)
  - Juvenile idiopathic arthritis [Recovered/Resolved]
  - Hypotension [Unknown]
  - Histiocytosis haematophagic [Recovered/Resolved]
  - Toxicity to various agents [Unknown]
